FAERS Safety Report 8524237 (Version 6)
Quarter: 2012Q4

REPORT INFORMATION
  Report Type: 
  Country: FR (occurrence: FR)
  Receive Date: 20120420
  Receipt Date: 20120907
  Transmission Date: 20130627
  Serious: Yes (Other)
  Sender: FDA-Public Use
  Company Number: FR-JNJFOC-20120407576

PATIENT
  Age: 50 None
  Sex: Male
  Weight: 91 kg

DRUGS (2)
  1. EPITOMAX [Suspect]
     Indication: EPILEPSY
     Dosage: the start date was more than 15 years
     Route: 048
     Dates: end: 20110104
  2. TEGRETOL [Concomitant]

REACTIONS (2)
  - Dyspnoea [Unknown]
  - Cardiac disorder [Unknown]
